FAERS Safety Report 17422494 (Version 1)
Quarter: 2020Q1

REPORT INFORMATION
  Report Type: Spontaneous
  Country: US (occurrence: US)
  Receive Date: 20200215
  Receipt Date: 20200215
  Transmission Date: 20200409
  Serious: Yes (Life-Threatening, Hospitalization)
  Sender: FDA-Public Use
  Company Number: US-AXELLIA-002974

PATIENT
  Age: 30 Year
  Sex: Female

DRUGS (2)
  1. ERTAPENEM/ERTAPENEM SODIUM [Concomitant]
     Active Substance: ERTAPENEM
  2. DAPTOMYCIN. [Suspect]
     Active Substance: DAPTOMYCIN
     Indication: BACTERAEMIA
     Dosage: AROUND 11 MG/KG/D AND LATER INCREASED TO 14 MG/KG/D

REACTIONS (1)
  - Drug resistance [Unknown]
